FAERS Safety Report 8167863-8 (Version None)
Quarter: 2012Q1

REPORT INFORMATION
  Report Type: 
  Country: None (occurrence: None)
  Receive Date: 20120227
  Receipt Date: 20120216
  Transmission Date: 20120608
  Serious: Yes (Hospitalization)
  Sender: FDA-Public Use
  Company Number: US-BAYER-2011-123071

PATIENT
  Age: 34 Year
  Sex: Female
  Weight: 63.265 kg

DRUGS (8)
  1. NORDETTE-21 [Concomitant]
     Indication: CONTRACEPTION
     Dosage: UNK
     Dates: start: 20070101
  2. PERCOCET [Concomitant]
     Indication: PAIN
     Dosage: 1-2 EVERY 4-12 HOURS, PRN
  3. YAZ [Suspect]
     Indication: CONTRACEPTION
     Dosage: UNK
     Dates: start: 20070101
  4. VICODIN [Concomitant]
     Indication: PAIN
     Dosage: 5-500 MG DAILY
     Route: 048
  5. BENADRYL [Concomitant]
     Indication: PRURITUS ALLERGIC
     Dosage: 25 MG, PRN
     Route: 048
  6. DROSPIRENONE AND ETHINYL ESTRADIOL [Suspect]
     Indication: CONTRACEPTION
     Dosage: UNK
     Dates: start: 20071101, end: 20071201
  7. PHENERGAN [Concomitant]
     Indication: NAUSEA
     Dosage: 25 MG, BEFORE EACH MEAL
     Route: 048
  8. YASMIN [Suspect]
     Indication: CONTRACEPTION
     Dosage: UNK
     Dates: start: 20070101

REACTIONS (5)
  - MENTAL DISORDER [None]
  - ABDOMINAL PAIN [None]
  - CHOLECYSTITIS CHRONIC [None]
  - POST CHOLECYSTECTOMY SYNDROME [None]
  - APPENDICITIS [None]
